FAERS Safety Report 18397004 (Version 3)
Quarter: 2021Q1

REPORT INFORMATION
  Report Type: Report from Study
  Country: US (occurrence: US)
  Receive Date: 20201019
  Receipt Date: 20210216
  Transmission Date: 20210419
  Serious: Yes (Hospitalization)
  Sender: FDA-Public Use
  Company Number: US-B.I. PHARMACEUTICALS,INC./RIDGEFIELD-2020-BI-054170

PATIENT
  Age: 69 Year
  Sex: Male

DRUGS (1)
  1. OFEV [Suspect]
     Active Substance: NINTEDANIB
     Indication: FIBROSIS
     Route: 048
     Dates: start: 20200706

REACTIONS (3)
  - Diverticulitis [Unknown]
  - Gastrointestinal haemorrhage [Not Recovered/Not Resolved]
  - Rectal haemorrhage [Unknown]
